FAERS Safety Report 21025076 (Version 4)
Quarter: 2022Q3

REPORT INFORMATION
  Report Type: Other
  Country: CZ (occurrence: CZ)
  Receive Date: 20220629
  Receipt Date: 20220727
  Transmission Date: 20221027
  Serious: Yes (Death, Hospitalization, Other)
  Sender: FDA-Public Use
  Company Number: CZ-CELLTRION INC.-2022CZ010193

PATIENT

DRUGS (34)
  1. RITUXIMAB [Suspect]
     Active Substance: RITUXIMAB
     Indication: Diffuse large B-cell lymphoma stage IV
     Dosage: REGIMEN #1, 375 MG/M2, 1Q3W
     Route: 042
     Dates: start: 20210420, end: 20210816
  2. VINCRISTINE SULFATE [Suspect]
     Active Substance: VINCRISTINE SULFATE
     Indication: Diffuse large B-cell lymphoma stage IV
     Dosage: REGIMEN #1, EVERY 3 WEEKS
     Route: 042
     Dates: start: 20210420, end: 20210816
  3. CYCLOPHOSPHAMIDE [Suspect]
     Active Substance: CYCLOPHOSPHAMIDE
     Indication: Diffuse large B-cell lymphoma stage IV
     Dosage: REGIMEN #1, EVERY 3 WEEKS
     Route: 042
     Dates: start: 20210420, end: 20210816
  4. METHYLPREDNISOLONE [Suspect]
     Active Substance: METHYLPREDNISOLONE
     Indication: Diffuse large B-cell lymphoma stage IV
     Dosage: REGIMEN #5, 80 MG, QD
     Route: 042
     Dates: start: 20210816, end: 20210816
  5. METHYLPREDNISOLONE [Suspect]
     Active Substance: METHYLPREDNISOLONE
     Dosage: REGIMEN #4, 80 MG, QD
     Route: 042
     Dates: start: 20210726, end: 20210726
  6. METHYLPREDNISOLONE [Suspect]
     Active Substance: METHYLPREDNISOLONE
     Dosage: REGIMEN #3, 80 MG, QD
     Route: 042
     Dates: start: 20210614, end: 20210614
  7. METHYLPREDNISOLONE [Suspect]
     Active Substance: METHYLPREDNISOLONE
     Dosage: REGIMEN #2, 80 MG, QD
     Route: 042
     Dates: start: 20210510, end: 20210510
  8. METHYLPREDNISOLONE [Suspect]
     Active Substance: METHYLPREDNISOLONE
     Dosage: REGIMEN #1, 80 MG, QD
     Route: 042
     Dates: start: 20210420, end: 20210420
  9. DOXORUBICIN HYDROCHLORIDE [Suspect]
     Active Substance: DOXORUBICIN HYDROCHLORIDE
     Indication: Diffuse large B-cell lymphoma stage IV
     Dosage: REGIMEN #1, EVERY 3 WEEKS
     Route: 042
     Dates: start: 20210420, end: 20210816
  10. PREDNISONE [Suspect]
     Active Substance: PREDNISONE
     Indication: Diffuse large B-cell lymphoma stage IV
     Dosage: REGIMEN #3
     Route: 048
     Dates: start: 20210615, end: 20210618
  11. PREDNISONE [Suspect]
     Active Substance: PREDNISONE
     Dosage: REGIMEN #4
     Route: 048
     Dates: start: 20210727, end: 20210730
  12. PREDNISONE [Suspect]
     Active Substance: PREDNISONE
     Dosage: REGIMEN #1
     Route: 048
     Dates: start: 20210421, end: 20210424
  13. PREDNISONE [Suspect]
     Active Substance: PREDNISONE
     Dosage: REGIMEN #5
     Route: 048
     Dates: start: 20210817, end: 20210820
  14. PREDNISONE [Suspect]
     Active Substance: PREDNISONE
     Dosage: REGIMEN #2
     Route: 048
     Dates: start: 20210511, end: 20210514
  15. EPCORITAMAB [Suspect]
     Active Substance: EPCORITAMAB
     Indication: Diffuse large B-cell lymphoma stage IV
     Dosage: REGIMEN #2, INTERMEDIATE DOSE
     Route: 058
     Dates: start: 20210426, end: 20210426
  16. EPCORITAMAB [Suspect]
     Active Substance: EPCORITAMAB
     Dosage: REGIMEN #3, FULL DOSE
     Route: 058
     Dates: start: 20210503, end: 20210719
  17. EPCORITAMAB [Suspect]
     Active Substance: EPCORITAMAB
     Dosage: REGIMEN #1, PRIMING DOSE
     Route: 058
     Dates: start: 20210420, end: 20210420
  18. EPCORITAMAB [Suspect]
     Active Substance: EPCORITAMAB
     Dosage: REGIMEN #4, FULL DOSE, 48 MG 1Q3W
     Route: 058
     Dates: start: 20210726, end: 20210816
  19. EPCORITAMAB [Suspect]
     Active Substance: EPCORITAMAB
     Dosage: REGIMEN #5, FULL DOSE, 48 MG 1Q4W
     Route: 058
     Dates: start: 20210913, end: 20220228
  20. ALLOPURINOL [Concomitant]
     Active Substance: ALLOPURINOL
     Dosage: UNK
     Dates: start: 20210414
  21. LANSOPRAZOLE [Concomitant]
     Active Substance: LANSOPRAZOLE
     Dosage: UNK
     Dates: start: 2020
  22. ZALDIAR [Concomitant]
     Active Substance: ACETAMINOPHEN\TRAMADOL HYDROCHLORIDE
     Dosage: UNK
     Dates: start: 2018
  23. VALACYCLOVIR HYDROCHLORIDE [Concomitant]
     Active Substance: VALACYCLOVIR HYDROCHLORIDE
     Dosage: UNK
     Dates: start: 20210414
  24. ALPRAZOLAM [Concomitant]
     Active Substance: ALPRAZOLAM
     Dosage: UNK
     Dates: start: 20210414
  25. SULFAMETHOXAZOLE\TRIMETHOPRIM [Concomitant]
     Active Substance: SULFAMETHOXAZOLE\TRIMETHOPRIM
     Dosage: UNK
     Dates: start: 20210414
  26. BISULEPIN [Concomitant]
     Active Substance: BISULEPIN
     Indication: Premedication
     Dosage: 2 MG
     Route: 048
     Dates: start: 20220228, end: 20220228
  27. AMLODIPINE BESYLATE [Concomitant]
     Active Substance: AMLODIPINE BESYLATE
     Dosage: UNK
     Dates: start: 202006
  28. POTASSIUM CHLORIDE [Concomitant]
     Active Substance: POTASSIUM CHLORIDE
     Dosage: UNK
     Dates: start: 20220413
  29. GRANISETRON HYDROCHLORIDE [Concomitant]
     Active Substance: GRANISETRON HYDROCHLORIDE
     Dosage: UNK
     Dates: start: 20210420
  30. PARALEN [PARACETAMOL] [Concomitant]
     Indication: Premedication
     Dosage: 1000 MG
     Route: 048
     Dates: start: 20220228, end: 20220228
  31. NOVALGIN (METAMIZOLE SODIUM) [Concomitant]
     Active Substance: METAMIZOLE SODIUM
     Dosage: UNK
     Dates: start: 20210414
  32. PREDNISONE [Concomitant]
     Active Substance: PREDNISONE
     Indication: Prophylaxis
     Dosage: 100 MILLIGRAM
     Route: 048
     Dates: start: 20220228, end: 20220228
  33. PREDNISONE [Concomitant]
     Active Substance: PREDNISONE
     Dosage: 100 MILLIGRAM
     Route: 048
     Dates: start: 20210503, end: 20210503
  34. PREDNISONE [Concomitant]
     Active Substance: PREDNISONE
     Dosage: 100 MILLIGRAM
     Route: 048
     Dates: start: 20210427, end: 20210429

REACTIONS (2)
  - COVID-19 pneumonia [Fatal]
  - COVID-19 pneumonia [Not Recovered/Not Resolved]

NARRATIVE: CASE EVENT DATE: 20220311
